FAERS Safety Report 5722787-8 (Version None)
Quarter: 2008Q2

REPORT INFORMATION
  Report Type: 
  Country: None (occurrence: None)
  Receive Date: 20080429
  Receipt Date: 20080128
  Transmission Date: 20081010
  Serious: No
  Sender: FDA-Public Use
  Company Number: US-ASTRAZENECA-2008UW02013

PATIENT
  Age: 68 Year
  Sex: Female
  Weight: 72.6 kg

DRUGS (5)
  1. NEXIUM [Suspect]
     Indication: GASTROOESOPHAGEAL REFLUX DISEASE
     Route: 048
  2. XOPENEX [Concomitant]
  3. IPRATROPIUM BROMIDE [Concomitant]
  4. FOLIC ACID [Concomitant]
  5. ADVAIR HFA [Concomitant]

REACTIONS (2)
  - DRUG INEFFECTIVE [None]
  - GASTROOESOPHAGEAL REFLUX DISEASE [None]
